FAERS Safety Report 25050536 (Version 5)
Quarter: 2025Q2

REPORT INFORMATION
  Report Type: Spontaneous
  Country: US (occurrence: US)
  Receive Date: 20250307
  Receipt Date: 20250529
  Transmission Date: 20250717
  Serious: No
  Sender: BRISTOL-MYERS SQUIBB COMPANY
  Company Number: US-BRISTOL-MYERS SQUIBB COMPANY-2025-029582

PATIENT
  Age: 82 Year
  Sex: Female
  Weight: 49.4 kg

DRUGS (11)
  1. ORENCIA [Suspect]
     Active Substance: ABATACEPT
     Indication: Product used for unknown indication
     Route: 058
     Dates: start: 20250116
  2. LUNESTA [Concomitant]
     Active Substance: ESZOPICLONE
     Indication: Insomnia
     Route: 048
  3. NEURONTIN [Concomitant]
     Active Substance: GABAPENTIN
     Indication: Product used for unknown indication
     Route: 048
  4. HYDRODIURIL [Concomitant]
     Active Substance: HYDROCHLOROTHIAZIDE
     Indication: Product used for unknown indication
     Dosage: 30 TABLET
     Route: 048
     Dates: start: 20241125, end: 20241231
  5. PROTONIX [Concomitant]
     Active Substance: PANTOPRAZOLE SODIUM
     Indication: Product used for unknown indication
     Dosage: 180 TABLET
     Route: 048
     Dates: start: 20240318, end: 20250310
  6. LIDODERM [Concomitant]
     Active Substance: LIDOCAINE
     Indication: Arthralgia
     Dosage: 1 PATCH
     Route: 061
     Dates: start: 20241227
  7. LIDODERM [Concomitant]
     Active Substance: LIDOCAINE
     Dosage: 1 PATCH
     Route: 061
     Dates: start: 20250207, end: 20250408
  8. TORADOL [Concomitant]
     Active Substance: KETOROLAC TROMETHAMINE
     Indication: Rheumatoid arthritis
     Route: 030
  9. CELEBREX [Concomitant]
     Active Substance: CELECOXIB
     Indication: Rheumatoid arthritis
     Dosage: FREQUENCY: ONCE
     Route: 048
     Dates: start: 20241227, end: 20250126
  10. CELEBREX [Concomitant]
     Active Substance: CELECOXIB
     Dosage: FREQUENCY: ONCE
     Route: 048
     Dates: start: 20250408
  11. KETOROLAC TROMETHAMINE [Concomitant]
     Active Substance: KETOROLAC TROMETHAMINE
     Indication: Rheumatoid arthritis

REACTIONS (1)
  - Abdominal discomfort [Unknown]
